FAERS Safety Report 6840820-7 (Version None)
Quarter: 2010Q3

REPORT INFORMATION
  Report Type: 
  Country: None (occurrence: None)
  Receive Date: 20100714
  Receipt Date: 20100706
  Transmission Date: 20110219
  Serious: Yes (Hospitalization, Disabling, Other)
  Sender: FDA-Public Use
  Company Number: A0870250A

PATIENT
  Age: 86 Year
  Sex: Male

DRUGS (1)
  1. ARZERRA [Suspect]
     Dosage: 2000MG UNKNOWN
     Route: 042
     Dates: start: 20100101

REACTIONS (5)
  - CELLULITIS [None]
  - HYPOGAMMAGLOBULINAEMIA [None]
  - PNEUMONIA [None]
  - PYREXIA [None]
  - RASH [None]
